FAERS Safety Report 4943315-0 (Version None)
Quarter: 2006Q1

REPORT INFORMATION
  Report Type: 
  Country: None (occurrence: None)
  Receive Date: 20060309
  Receipt Date: 20060306
  Transmission Date: 20060701
  Serious: No
  Sender: FDA-Public Use
  Company Number: 006790

PATIENT
  Age: 31 Year
  Sex: Female
  Weight: 52.2 kg

DRUGS (2)
  1. CLARAVIS [Suspect]
     Indication: ACNE CYSTIC
     Dosage: 40 MG, BID, ORAL
     Route: 048
     Dates: start: 20051113, end: 20060101
  2. NUVARING (ETONOGESTREL) [Concomitant]

REACTIONS (1)
  - DEPRESSION [None]
